FAERS Safety Report 13005259 (Version 2)
Quarter: 2017Q3

REPORT INFORMATION
  Report Type: Report from Study
  Country: CA (occurrence: CA)
  Receive Date: 20161207
  Receipt Date: 20170929
  Transmission Date: 20171127
  Serious: Yes (Other)
  Sender: FDA-Public Use
  Company Number: PHHY2016CA166696

PATIENT
  Sex: Female

DRUGS (62)
  1. VITAMIN D [Concomitant]
     Active Substance: CHOLECALCIFEROL
     Indication: PRODUCT USED FOR UNKNOWN INDICATION
     Dosage: 10000 IU, QW
     Route: 065
     Dates: start: 201111
  2. VITAMIN D [Concomitant]
     Active Substance: CHOLECALCIFEROL
     Dosage: 10000 IU, QW
     Route: 065
     Dates: start: 20170529
  3. ZOLOFT [Concomitant]
     Active Substance: SERTRALINE HYDROCHLORIDE
     Dosage: 100 MG, QD
     Route: 048
     Dates: start: 20160901
  4. SYNTHROID [Concomitant]
     Active Substance: LEVOTHYROXINE SODIUM
     Indication: PRODUCT USED FOR UNKNOWN INDICATION
     Dosage: 0.088 MG, QD
     Route: 048
     Dates: start: 201111
  5. SYNTHROID [Concomitant]
     Active Substance: LEVOTHYROXINE SODIUM
     Dosage: 0.088 MG, QD
     Route: 048
     Dates: start: 20150721
  6. SYNTHROID [Concomitant]
     Active Substance: LEVOTHYROXINE SODIUM
     Dosage: 0.088 MG, QD
     Route: 048
     Dates: start: 20151201
  7. M-CAL [Concomitant]
     Dosage: 500 MG, QD
     Route: 065
     Dates: start: 20140812
  8. LUTEINE [Concomitant]
     Dosage: UNK
     Route: 065
     Dates: start: 20140812
  9. LUTEINE [Concomitant]
     Dosage: UNK
     Route: 065
     Dates: start: 20160901
  10. OMEGA 3 [Concomitant]
     Active Substance: OMEGA-3 FATTY ACIDS
     Dosage: 4 DF (200), QD
     Route: 065
     Dates: start: 20160901
  11. VITAMIN D [Concomitant]
     Active Substance: CHOLECALCIFEROL
     Dosage: 10000 IU, QW
     Route: 065
     Dates: start: 20150721
  12. VITAMIN D [Concomitant]
     Active Substance: CHOLECALCIFEROL
     Dosage: 10000 IU, QW
     Route: 065
     Dates: start: 20160501
  13. SYNTHROID [Concomitant]
     Active Substance: LEVOTHYROXINE SODIUM
     Dosage: 0.088 MG, QD
     Route: 048
     Dates: start: 20160901
  14. M-CAL [Concomitant]
     Indication: PRODUCT USED FOR UNKNOWN INDICATION
     Dosage: 500 MG, QD
     Route: 065
     Dates: start: 201111
  15. TRAZODONE [Concomitant]
     Active Substance: TRAZODONE HYDROCHLORIDE
     Dosage: 0.5 DF, PRN
     Route: 065
     Dates: start: 20170529
  16. LUTEINE [Concomitant]
     Dosage: UNK
     Route: 065
     Dates: start: 20170831
  17. CELEBREX [Concomitant]
     Active Substance: CELECOXIB
     Indication: PRODUCT USED FOR UNKNOWN INDICATION
     Dosage: 200 MG, PRN
     Route: 048
     Dates: start: 20170831
  18. VITAMIN D [Concomitant]
     Active Substance: CHOLECALCIFEROL
     Dosage: 10000 IU, QW
     Route: 065
     Dates: start: 20160812
  19. VITAMIN D [Concomitant]
     Active Substance: CHOLECALCIFEROL
     Dosage: 10000 IU, QW
     Route: 065
     Dates: start: 20160901
  20. ZOLOFT [Concomitant]
     Active Substance: SERTRALINE HYDROCHLORIDE
     Dosage: 125 MG, QD
     Route: 048
     Dates: start: 20151201
  21. M-CAL [Concomitant]
     Dosage: 500 MG, QD
     Route: 065
     Dates: start: 20150721
  22. MELATONIN [Concomitant]
     Active Substance: MELATONIN
     Indication: PRODUCT USED FOR UNKNOWN INDICATION
     Dosage: 3 MG, QD (BED TIME)
     Route: 065
     Dates: start: 20140812
  23. LUTEINE [Concomitant]
     Dosage: UNK
     Route: 065
     Dates: start: 20160501
  24. OMEGA 3 [Concomitant]
     Active Substance: OMEGA-3 FATTY ACIDS
     Dosage: 4 DF, QD
     Route: 065
     Dates: start: 20150721
  25. ACLASTA [Suspect]
     Active Substance: ZOLEDRONIC ACID
     Dosage: 5 MG, Q12MO
     Route: 042
     Dates: start: 20141111
  26. VITAMIN D [Concomitant]
     Active Substance: CHOLECALCIFEROL
     Dosage: 10000 IU, QW
     Route: 065
     Dates: start: 20140812
  27. ZOLOFT [Concomitant]
     Active Substance: SERTRALINE HYDROCHLORIDE
     Dosage: 75 MG, QD
     Route: 048
     Dates: start: 20150721
  28. ZOLOFT [Concomitant]
     Active Substance: SERTRALINE HYDROCHLORIDE
     Dosage: 125 MG, QD
     Route: 048
     Dates: start: 20170831
  29. SYNTHROID [Concomitant]
     Active Substance: LEVOTHYROXINE SODIUM
     Dosage: 0.088 MG, QD
     Route: 048
     Dates: start: 20160501
  30. OMEGA 3 [Concomitant]
     Active Substance: OMEGA-3 FATTY ACIDS
     Dosage: 4 DF, QD
     Route: 065
     Dates: start: 20170831
  31. M-CAL [Concomitant]
     Dosage: 500 MG, QD
     Route: 065
     Dates: start: 20151201
  32. M-CAL [Concomitant]
     Dosage: 500 MG, QD
     Route: 065
     Dates: start: 20160901
  33. M-CAL [Concomitant]
     Dosage: 500 MG, QD
     Route: 065
     Dates: start: 20170529
  34. TRAZODONE [Concomitant]
     Active Substance: TRAZODONE HYDROCHLORIDE
     Indication: PRODUCT USED FOR UNKNOWN INDICATION
     Dosage: 0.25 DF, HS (AT BED TIME)
     Route: 065
     Dates: start: 201111
  35. TRAZODONE [Concomitant]
     Active Substance: TRAZODONE HYDROCHLORIDE
     Dosage: 0.5 DF, PRN
     Route: 065
     Dates: start: 20150721
  36. LUTEINE [Concomitant]
     Dosage: UNK
     Route: 065
     Dates: start: 20170529
  37. OMEGA 3 [Concomitant]
     Active Substance: OMEGA-3 FATTY ACIDS
     Indication: PRODUCT USED FOR UNKNOWN INDICATION
     Dosage: 4 DF, QD
     Route: 065
     Dates: start: 201111
  38. OMEGA 3 [Concomitant]
     Active Substance: OMEGA-3 FATTY ACIDS
     Dosage: 4 DF, QD
     Route: 065
     Dates: start: 20140812
  39. OMEGA 3 [Concomitant]
     Active Substance: OMEGA-3 FATTY ACIDS
     Dosage: 4 DF (200), QD
     Route: 065
     Dates: start: 20160501
  40. ACLASTA [Suspect]
     Active Substance: ZOLEDRONIC ACID
     Dosage: UNK
     Route: 042
     Dates: start: 20160106
  41. VITAMIN D [Concomitant]
     Active Substance: CHOLECALCIFEROL
     Dosage: 10000 IU, QW
     Route: 065
     Dates: start: 20151201
  42. ZOLOFT [Concomitant]
     Active Substance: SERTRALINE HYDROCHLORIDE
     Dosage: 100 MG, QD
     Route: 048
     Dates: start: 20170529
  43. SYNTHROID [Concomitant]
     Active Substance: LEVOTHYROXINE SODIUM
     Dosage: 0.088 MG, QD
     Route: 048
     Dates: start: 20140812
  44. LUTEINE [Concomitant]
     Dosage: UNK
     Route: 065
     Dates: start: 20150721
  45. ZOLOFT [Concomitant]
     Active Substance: SERTRALINE HYDROCHLORIDE
     Dosage: 100 MG, QD
     Route: 048
     Dates: start: 20160501
  46. SYNTHROID [Concomitant]
     Active Substance: LEVOTHYROXINE SODIUM
     Dosage: 0.088 MG, QD
     Route: 048
     Dates: start: 20170529
  47. TRAZODONE [Concomitant]
     Active Substance: TRAZODONE HYDROCHLORIDE
     Dosage: 0.5 DF, HS (AT BED TIME)
     Route: 065
     Dates: start: 20140812
  48. TRAZODONE [Concomitant]
     Active Substance: TRAZODONE HYDROCHLORIDE
     Dosage: 0.5 DF, PRN
     Route: 065
     Dates: start: 20151201
  49. TRAZODONE [Concomitant]
     Active Substance: TRAZODONE HYDROCHLORIDE
     Dosage: 0.5 DF, PRN
     Route: 065
     Dates: start: 20160501
  50. ACLASTA [Suspect]
     Active Substance: ZOLEDRONIC ACID
     Indication: OSTEOPOROSIS
     Dosage: 5 MG, Q12MO
     Route: 042
     Dates: start: 20130926
  51. VITAMIN D [Concomitant]
     Active Substance: CHOLECALCIFEROL
     Dosage: 10000 IU, QW
     Route: 065
     Dates: start: 20170831
  52. ZOLOFT [Concomitant]
     Active Substance: SERTRALINE HYDROCHLORIDE
     Indication: PRODUCT USED FOR UNKNOWN INDICATION
     Dosage: 125 MG, QD
     Route: 048
     Dates: start: 201111
  53. ZOLOFT [Concomitant]
     Active Substance: SERTRALINE HYDROCHLORIDE
     Dosage: 125 MG, QD
     Route: 048
     Dates: start: 20140812
  54. SYNTHROID [Concomitant]
     Active Substance: LEVOTHYROXINE SODIUM
     Dosage: 0.088 MG, QD
     Route: 048
     Dates: start: 20170831
  55. M-CAL [Concomitant]
     Dosage: 500 MG, QD
     Route: 065
     Dates: start: 20160501
  56. M-CAL [Concomitant]
     Dosage: 500 MG, QD
     Route: 065
     Dates: start: 20170831
  57. TRAZODONE [Concomitant]
     Active Substance: TRAZODONE HYDROCHLORIDE
     Dosage: 0.5 DF, PRN
     Route: 065
     Dates: start: 20160901
  58. TRAZODONE [Concomitant]
     Active Substance: TRAZODONE HYDROCHLORIDE
     Dosage: 0.5 DF, PRN
     Route: 065
     Dates: start: 20170831
  59. LUTEINE [Concomitant]
     Indication: PRODUCT USED FOR UNKNOWN INDICATION
     Dosage: UNK
     Route: 065
     Dates: start: 201111
  60. LUTEINE [Concomitant]
     Dosage: UNK
     Route: 065
     Dates: start: 20151201
  61. OMEGA 3 [Concomitant]
     Active Substance: OMEGA-3 FATTY ACIDS
     Dosage: 2 DF, QD
     Route: 065
     Dates: start: 20151201
  62. OMEGA 3 [Concomitant]
     Active Substance: OMEGA-3 FATTY ACIDS
     Dosage: 4 DF, QD
     Route: 065
     Dates: start: 20170529

REACTIONS (1)
  - Macular degeneration [Unknown]

NARRATIVE: CASE EVENT DATE: 2013
